FAERS Safety Report 4639664-6 (Version None)
Quarter: 2005Q2

REPORT INFORMATION
  Report Type: 
  Country: None (occurrence: None)
  Receive Date: 20050328
  Receipt Date: 20041216
  Transmission Date: 20051028
  Serious: No
  Sender: FDA-Public Use
  Company Number: USA041286317

PATIENT
  Age: 42 Year
  Sex: Female

DRUGS (4)
  1. STRATTERA [Suspect]
     Indication: ATTENTION DEFICIT/HYPERACTIVITY DISORDER
     Dosage: 60 MG DAY
     Dates: start: 20041116
  2. CLARITIN [Concomitant]
  3. MULTI-VITAMIN [Concomitant]
  4. BENADRYL [Concomitant]

REACTIONS (2)
  - ANXIETY [None]
  - IRRITABILITY [None]
